FAERS Safety Report 5531470-3 (Version None)
Quarter: 2007Q4

REPORT INFORMATION
  Report Type: 
  Country: None (occurrence: None)
  Receive Date: 20071203
  Receipt Date: 20071129
  Transmission Date: 20080405
  Serious: Yes (Death)
  Sender: FDA-Public Use
  Company Number: PHBS2007ES20095

PATIENT
  Sex: Female

DRUGS (6)
  1. ANALGESICS [Concomitant]
  2. IMMUNE GLOBULIN INTRAVENOUS (HUMAN) [Concomitant]
  3. TETANUS VACCINE [Concomitant]
  4. NOLOTIL [Concomitant]
  5. TARIVID [Concomitant]
  6. VOLTAREN [Suspect]
     Dosage: 1 DF, ONCE/SINGLE
     Route: 048

REACTIONS (5)
  - ASTHMATIC CRISIS [None]
  - BRONCHOSPASM [None]
  - COMA [None]
  - LOSS OF CONSCIOUSNESS [None]
  - PULSE ABSENT [None]
